FAERS Safety Report 9922417 (Version 3)
Quarter: 2014Q4

REPORT INFORMATION
  Report Type: Report from Study
  Country: DE (occurrence: DE)
  Receive Date: 20140225
  Receipt Date: 20141205
  Transmission Date: 20150529
  Serious: Yes (Death, Hospitalization)
  Sender: FDA-Public Use
  Company Number: DE-TEVA-2011005781

PATIENT
  Age: 72 Year
  Sex: Male
  Weight: 79.9 kg

DRUGS (4)
  1. RITUXIMAB [Suspect]
     Active Substance: RITUXIMAB
     Indication: NON-HODGKIN^S LYMPHOMA
     Dosage: 750 MILLIGRAM DAILY;
     Route: 042
     Dates: start: 20110415, end: 20110912
  2. TOPIRAMATE. [Concomitant]
     Active Substance: TOPIRAMATE
     Indication: EPILEPSY
  3. BENDAMUSTINE HCL [Suspect]
     Active Substance: BENDAMUSTINE HYDROCHLORIDE
     Indication: NON-HODGKIN^S LYMPHOMA
     Dosage: 180 MILLIGRAM DAILY;
     Route: 042
     Dates: start: 20110415, end: 20110912
  4. VALPROINSAURE [Concomitant]
     Indication: EPILEPSY

REACTIONS (5)
  - Leukopenia [Not Recovered/Not Resolved]
  - Epilepsy [Recovered/Resolved]
  - Urinary tract infection [Recovered/Resolved]
  - Pneumonia [Fatal]
  - Campylobacter gastroenteritis [Recovered/Resolved]

NARRATIVE: CASE EVENT DATE: 20110710
